FAERS Safety Report 24341198 (Version 3)
Quarter: 2024Q4

REPORT INFORMATION
  Report Type: Spontaneous
  Country: FR (occurrence: FR)
  Receive Date: 20240919
  Receipt Date: 20241007
  Transmission Date: 20250114
  Serious: Yes (Hospitalization, Other)
  Sender: BAUSCH AND LOMB
  Company Number: FR-PFIZER INC-2011110387

PATIENT
  Age: 61 Year
  Sex: Female

DRUGS (17)
  1. LORAZEPAM [Suspect]
     Active Substance: LORAZEPAM
     Indication: Product used for unknown indication
     Dosage: 4 MG, 1X/DAY REGIMEN DOSE UNIT: MILLIGRAM
     Route: 048
  2. ESOMEPRAZOLE MAGNESIUM [Suspect]
     Active Substance: ESOMEPRAZOLE MAGNESIUM
     Indication: Product used for unknown indication
     Dosage: 1 UNIT DAILY REGIMEN DOSE UNIT: DOSAGE FORM
     Route: 048
  3. CYAMEMAZINE [Suspect]
     Active Substance: CYAMEMAZINE
     Indication: Product used for unknown indication
     Dosage: 15 ORAL DROPS DAILY
     Route: 048
  4. VERAPAMIL [Suspect]
     Active Substance: VERAPAMIL HYDROCHLORIDE
     Indication: Product used for unknown indication
     Dosage: 40 MG, 1X/DAY REGIMEN DOSE UNIT: MILLIGRAM
     Route: 048
     Dates: start: 20110412
  5. VERAPAMIL [Suspect]
     Active Substance: VERAPAMIL HYDROCHLORIDE
     Dosage: 40 MG, 3X/DAY REGIMEN DOSE UNIT: MILLIGRAM
     Route: 048
     Dates: end: 20110411
  6. REVATIO [Suspect]
     Active Substance: SILDENAFIL CITRATE
     Indication: Pulmonary hypertension
     Dosage: 3 UNITS DAILY REGIMEN DOSE UNIT: DOSAGE FORM
     Route: 048
  7. LEVOTHYROXINE [Suspect]
     Active Substance: LEVOTHYROXINE
     Indication: Product used for unknown indication
     Dosage: 50 UG, 1X/DAY REGIMEN DOSE UNIT: MICROGRAM
     Route: 048
  8. FLOLAN [Suspect]
     Active Substance: EPOPROSTENOL SODIUM
     Indication: Product used for unknown indication
     Route: 042
     Dates: start: 20090916
  9. FLOLAN [Suspect]
     Active Substance: EPOPROSTENOL SODIUM
     Route: 042
  10. FUROSEMIDE [Suspect]
     Active Substance: FUROSEMIDE
     Indication: Product used for unknown indication
     Dosage: 2 UNITS DAILY REGIMEN DOSE UNIT: DOSAGE FORM
     Route: 048
  11. MIANSERIN HYDROCHLORIDE [Suspect]
     Active Substance: MIANSERIN HYDROCHLORIDE
     Indication: Product used for unknown indication
     Dosage: 1 UNIT DAILY REGIMEN DOSE UNIT: DOSAGE FORM
     Route: 048
  12. ZOLPIDEM [Suspect]
     Active Substance: ZOLPIDEM TARTRATE
     Indication: Product used for unknown indication
     Dosage: 2 TABLETS AT NIGHT REGIMEN DOSE UNIT: DOSAGE FORM
     Route: 048
  13. TRAMADOL [Suspect]
     Active Substance: TRAMADOL
     Indication: Product used for unknown indication
     Dosage: 1 UNIT DAILY REGIMEN DOSE UNIT: DOSAGE FORM
     Route: 048
  14. TRACLEER [Suspect]
     Active Substance: BOSENTAN
     Indication: Product used for unknown indication
     Dosage: 2 UNITS DAILY REGIMEN DOSE UNIT: DOSAGE FORM
     Route: 048
  15. WARFARIN SODIUM [Suspect]
     Active Substance: WARFARIN SODIUM
     Indication: Product used for unknown indication
     Dosage: DEPENDING ON INR
     Route: 048
     Dates: start: 20110414
  16. WARFARIN SODIUM [Suspect]
     Active Substance: WARFARIN SODIUM
     Dosage: DEPENDING ON INR
     Route: 048
     Dates: end: 20110410
  17. ATARAX [Suspect]
     Active Substance: HYDROXYZINE HYDROCHLORIDE
     Indication: Product used for unknown indication
     Dosage: 1 UNIT DAILY REGIMEN DOSE UNIT: DOSAGE FORM
     Route: 048

REACTIONS (6)
  - Gastrointestinal haemorrhage [Recovering/Resolving]
  - Melaena [Unknown]
  - Rectal haemorrhage [Unknown]
  - Epistaxis [Unknown]
  - Thrombocytopenia [Recovered/Resolved]
  - Drug interaction [Unknown]

NARRATIVE: CASE EVENT DATE: 20110410
